FAERS Safety Report 8182060 (Version 4)
Quarter: 2012Q4

REPORT INFORMATION
  Report Type: 
  Country: US (occurrence: US)
  Receive Date: 20111014
  Receipt Date: 20120914
  Transmission Date: 20130627
  Serious: Yes (Death, Other)
  Sender: FDA-Public Use
  Company Number: PHEH2011US06517

PATIENT
  Age: 89 None
  Sex: Female

DRUGS (3)
  1. TOBI [Suspect]
     Indication: CYSTIC FIBROSIS
     Dosage: 300 mg, Q12H
     Dates: start: 20100831
  2. TOBI [Suspect]
     Dates: start: 20110705
  3. CARDIAZEM [Concomitant]
     Indication: ATRIAL FIBRILLATION
     Dosage: 180 mg, QD

REACTIONS (8)
  - Chronic obstructive pulmonary disease [Fatal]
  - Cardiac failure congestive [Fatal]
  - Cardiac valve disease [Fatal]
  - Atrial fibrillation [Unknown]
  - Bronchiectasis [Unknown]
  - Electrocardiogram T wave amplitude decreased [Unknown]
  - Loss of consciousness [Unknown]
  - Myocardial infarction [Unknown]
